FAERS Safety Report 5934907-0 (Version None)
Quarter: 2008Q4

REPORT INFORMATION
  Report Type: 
  Country: None (occurrence: None)
  Receive Date: 20081027
  Receipt Date: 20081017
  Transmission Date: 20090506
  Serious: Yes (Other)
  Sender: FDA-Public Use
  Company Number: 2008-178978-NL

PATIENT
  Age: 34 Year
  Sex: Female

DRUGS (2)
  1. IMPLANON [Suspect]
     Indication: CONTRACEPTION
     Dates: end: 20050408
  2. IMPLANON [Suspect]
     Indication: CONTRACEPTION
     Dates: start: 20050408, end: 20080526

REACTIONS (5)
  - DRUG EXPOSURE DURING PREGNANCY [None]
  - ECLAMPSIA [None]
  - INDUCED LABOUR [None]
  - PREGNANCY WITH IMPLANT CONTRACEPTIVE [None]
  - RENAL DISORDER IN PREGNANCY [None]
